FAERS Safety Report 5771780-8 (Version None)
Quarter: 2008Q2

REPORT INFORMATION
  Report Type: 
  Country: None (occurrence: None)
  Receive Date: 20080613
  Receipt Date: 20080610
  Transmission Date: 20081010
  Serious: Yes (Hospitalization, Other)
  Sender: FDA-Public Use
  Company Number: JP-BRISTOL-MYERS SQUIBB COMPANY-14224711

PATIENT
  Age: 63 Year
  Sex: Female

DRUGS (2)
  1. BRIPLATIN [Suspect]
     Indication: HEPATIC NEOPLASM MALIGNANT
     Dosage: 10MG X 1/2 WEEKS AND  5MG X 1/1 DAY ,     (DAYS 1, 3, 5,)
     Route: 013
  2. FLUOROURACIL [Suspect]
     Indication: HEPATIC NEOPLASM MALIGNANT
     Dosage: UNKNOWN DATES: 500 MG 1/2WEEKS,  UNKNOWN DATES: 250MG 1/1DAY  (DAYS 1-5)
     Route: 013

REACTIONS (2)
  - CHOLANGITIS SCLEROSING [None]
  - DIARRHOEA [None]
